FAERS Safety Report 25959455 (Version 1)
Quarter: 2025Q4

REPORT INFORMATION
  Report Type: Report from Study
  Country: US (occurrence: US)
  Receive Date: 20251026
  Receipt Date: 20251026
  Transmission Date: 20260117
  Serious: No
  Sender: TRAVERE THERAPEUTICS
  Company Number: US-TRAVERE-2025TVT01674

PATIENT
  Age: 47 Year
  Sex: Male

DRUGS (9)
  1. FILSPARI [Suspect]
     Active Substance: SPARSENTAN
     Indication: IgA nephropathy
     Route: 048
     Dates: start: 20250228, end: 20250527
  2. FILSPARI [Suspect]
     Active Substance: SPARSENTAN
     Route: 048
     Dates: start: 20250812
  3. HYDRALAZINE [Concomitant]
     Active Substance: HYDRALAZINE HYDROCHLORIDE
  4. METOPROLOL [Concomitant]
     Active Substance: METOPROLOL
  5. LEVOTHYROXINE [Concomitant]
     Active Substance: LEVOTHYROXINE
  6. NIFEDIPINE [Concomitant]
     Active Substance: NIFEDIPINE
  7. FARXIGA [Concomitant]
     Active Substance: DAPAGLIFLOZIN PROPANEDIOL
  8. SEMAGLUTIDE [Concomitant]
     Active Substance: SEMAGLUTIDE
  9. VITAMIN D3 [Concomitant]
     Active Substance: CHOLECALCIFEROL

REACTIONS (4)
  - Blood creatinine increased [Unknown]
  - Glomerular filtration rate decreased [Unknown]
  - Urine protein/creatinine ratio increased [Unknown]
  - Urine albumin/creatinine ratio increased [Unknown]

NARRATIVE: CASE EVENT DATE: 20250908
